FAERS Safety Report 7173721 (Version 4)
Quarter: 2013Q3

REPORT INFORMATION
  Report Type: Spontaneous
  Country: CA (occurrence: CA)
  Receive Date: 20091111
  Receipt Date: 20130827
  Transmission Date: 20140515
  Serious: No
  Sender: FDA-Public Use
  Company Number: CA-ROCHE-666127

PATIENT
  Age: 2 Year
  Sex: Male

DRUGS (2)
  1. TAMIFLU [Suspect]
     Indication: INFLUENZA
     Dosage: OVERDOSE (5 TIMES THE PRESCRIBED DOSE)
     Route: 048
     Dates: start: 20091103, end: 20091103
  2. TAMIFLU [Suspect]
     Route: 048

REACTIONS (2)
  - Overdose [Unknown]
  - Vomiting [Recovered/Resolved]
